FAERS Safety Report 4821673-5 (Version None)
Quarter: 2005Q4

REPORT INFORMATION
  Report Type: 
  Country: None (occurrence: None)
  Receive Date: 20051107
  Receipt Date: 20051101
  Transmission Date: 20060501
  Serious: Yes (Hospitalization)
  Sender: FDA-Public Use
  Company Number: NZ-MERCK-0511NZL00012

PATIENT
  Sex: Male

DRUGS (1)
  1. ZOCOR [Suspect]
     Route: 048
     Dates: start: 20050101

REACTIONS (2)
  - CARDIAC FIBRILLATION [None]
  - PARAESTHESIA [None]
